FAERS Safety Report 25437443 (Version 3)
Quarter: 2025Q3

REPORT INFORMATION
  Report Type: Report from Study
  Country: JP (occurrence: JP)
  Receive Date: 20250616
  Receipt Date: 20250715
  Transmission Date: 20251021
  Serious: Yes (Death, Other)
  Sender: REGENERON
  Company Number: JP-REGENERON PHARMACEUTICALS, INC.-2025-095042

PATIENT
  Age: 60 Year
  Sex: Female
  Weight: 58.3 kg

DRUGS (3)
  1. LIBTAYO [Suspect]
     Active Substance: CEMIPLIMAB-RWLC
     Indication: Cervix carcinoma recurrent
     Route: 041
     Dates: start: 20250318, end: 20250318
  2. LIBTAYO [Suspect]
     Active Substance: CEMIPLIMAB-RWLC
     Route: 041
     Dates: start: 20250409, end: 20250409
  3. LIBTAYO [Suspect]
     Active Substance: CEMIPLIMAB-RWLC
     Route: 041
     Dates: start: 20250430, end: 20250430

REACTIONS (2)
  - Drug ineffective [Fatal]
  - Pneumonia aspiration [Fatal]

NARRATIVE: CASE EVENT DATE: 20250520
